FAERS Safety Report 16827983 (Version 1)
Quarter: 2019Q3

REPORT INFORMATION
  Report Type: Spontaneous
  Country: US (occurrence: US)
  Receive Date: 20190729
  Receipt Date: 20190729
  Transmission Date: 20191005
  Serious: Yes (Hospitalization)
  Sender: FDA-Public Use
  Company Number: None

PATIENT
  Age: 69 Year
  Sex: Male

DRUGS (6)
  1. ALLEGRA TAB [Concomitant]
  2. BIOTIN TAB [Concomitant]
  3. CEFUROXIME TAB [Concomitant]
  4. GLATIRAMER 40MG/ML PFS [Suspect]
     Active Substance: GLATIRAMER
     Indication: MULTIPLE SCLEROSIS
     Dosage: ?          OTHER DOSE:1 SYR;?
     Route: 058
     Dates: start: 20181127
  5. ASPIRIN LOW TAB [Concomitant]
  6. DOXYCYC MONO CAP [Concomitant]

REACTIONS (1)
  - Pneumonia [None]

NARRATIVE: CASE EVENT DATE: 20190717
